FAERS Safety Report 6309009-4 (Version None)
Quarter: 2009Q3

REPORT INFORMATION
  Report Type: 
  Country: None (occurrence: None)
  Receive Date: 20090813
  Receipt Date: 20090805
  Transmission Date: 20100115
  Serious: Yes (Hospitalization)
  Sender: FDA-Public Use
  Company Number: US-ABBOTT-09P-163-0589569-00

PATIENT
  Sex: Male
  Weight: 116.22 kg

DRUGS (2)
  1. HUMIRA [Suspect]
     Indication: CROHN'S DISEASE
     Route: 030
  2. REMICADE [Suspect]
     Indication: CROHN'S DISEASE
     Dosage: LYOPHILIZED POWDER
     Route: 042
     Dates: start: 20000102, end: 20090114

REACTIONS (3)
  - CROHN'S DISEASE [None]
  - INTESTINAL OBSTRUCTION [None]
  - PYREXIA [None]
